FAERS Safety Report 7282233-2 (Version None)
Quarter: 2011Q1

REPORT INFORMATION
  Report Type: 
  Country: None (occurrence: None)
  Receive Date: 20110125
  Receipt Date: 20110118
  Transmission Date: 20110831
  Serious: Yes (Death)
  Sender: FDA-Public Use
  Company Number: 20119953

PATIENT
  Sex: Male

DRUGS (3)
  1. HYDROMORPHONE [Concomitant]
  2. LIORESAL [Suspect]
     Indication: MUSCLE SPASTICITY
     Dosage: DAILY, INTRATHECAL
     Route: 037
  3. BUPIVACAINE HCL [Concomitant]

REACTIONS (2)
  - TERMINAL STATE [None]
  - NEOPLASM MALIGNANT [None]
